FAERS Safety Report 8342855-4 (Version None)
Quarter: 2012Q2

REPORT INFORMATION
  Report Type: 
  Country: None (occurrence: None)
  Receive Date: 20120508
  Receipt Date: 20120501
  Transmission Date: 20120825
  Serious: No
  Sender: FDA-Public Use
  Company Number: US-PFIZER INC-2012091428

PATIENT
  Sex: Female

DRUGS (8)
  1. POLYMYXIN B SULFATE [Suspect]
     Dosage: UNK
  2. BACITRACIN [Suspect]
     Dosage: UNK
  3. CYMBALTA [Suspect]
     Dosage: UNK
  4. PREDNISONE [Suspect]
     Dosage: UNK
  5. WELLBUTRIN [Suspect]
     Dosage: UNK
  6. NEOMYCIN SULFATE [Suspect]
     Dosage: UNK
  7. CORTISONE ACETATE [Suspect]
     Dosage: UNK
  8. BENADRYL [Suspect]
     Dosage: UNK

REACTIONS (1)
  - DRUG HYPERSENSITIVITY [None]
